FAERS Safety Report 5441673-4 (Version None)
Quarter: 2007Q3

REPORT INFORMATION
  Report Type: 
  Country: None (occurrence: None)
  Receive Date: 20070829
  Receipt Date: 20070817
  Transmission Date: 20080115
  Serious: Yes (Life-Threatening, Hospitalization)
  Sender: FDA-Public Use
  Company Number: 100#03#2007-03149

PATIENT
  Age: 10 Year
  Sex: Male

DRUGS (1)
  1. DESMOPRESSIN ACETATE [Suspect]
     Indication: ENURESIS
     Dosage: (1DAYS)
     Route: 045
     Dates: start: 20010522

REACTIONS (4)
  - DELIRIUM [None]
  - GRAND MAL CONVULSION [None]
  - HYPONATRAEMIA [None]
  - SOMNOLENCE [None]
